FAERS Safety Report 15238301 (Version 2)
Quarter: 2018Q3

REPORT INFORMATION
  Report Type: Not Available
  Country: US (occurrence: US)
  Receive Date: 20180803
  Receipt Date: 20180828
  Transmission Date: 20181010
  Serious: No
  Sender: FDA-Public Use
  Company Number: US-NEUROCRINE BIOSCIENCES INC.-2018NBI02158

PATIENT
  Sex: Male
  Weight: 73.55 kg

DRUGS (23)
  1. XARELTO [Concomitant]
     Active Substance: RIVAROXABAN
     Indication: ANTICOAGULANT THERAPY
  2. CLONAZEPAM. [Concomitant]
     Active Substance: CLONAZEPAM
     Indication: TONGUE DISORDER
     Dosage: 2?3 TIMES A DAY
  3. RESTASIS [Concomitant]
     Active Substance: CYCLOSPORINE
     Indication: DRY EYE
     Dosage: ONE DROP IN EACH EYE TWICE A DAY
  4. LOSARTAN. [Concomitant]
     Active Substance: LOSARTAN
     Indication: BLOOD PRESSURE ABNORMAL
     Route: 048
  5. MAGNESIUM [Concomitant]
     Active Substance: MAGNESIUM
     Route: 048
  6. XARELTO [Concomitant]
     Active Substance: RIVAROXABAN
     Indication: TRANSIENT ISCHAEMIC ATTACK
  7. INGREZZA [Suspect]
     Active Substance: VALBENAZINE
     Indication: TARDIVE DYSKINESIA
     Route: 048
     Dates: start: 20180711
  8. XARELTO [Concomitant]
     Active Substance: RIVAROXABAN
     Indication: CEREBROVASCULAR ACCIDENT
     Route: 048
  9. ASTELIN [Concomitant]
     Active Substance: AZELASTINE HYDROCHLORIDE
     Dosage: 1 SPRAY TWICE A DAY IN EACH NOSTRIL
  10. TYLENOL [Concomitant]
     Active Substance: ACETAMINOPHEN
     Dosage: AS NEEDED
  11. PROTONIX [Concomitant]
     Active Substance: PANTOPRAZOLE SODIUM
     Indication: GASTROOESOPHAGEAL REFLUX DISEASE
     Dosage: ONE TO TWO TIMES A DAY
     Route: 048
  12. CENTRUM MULTIVITAMIN [Concomitant]
     Route: 048
  13. I FLORA [Concomitant]
     Route: 048
  14. VITAMIN B2 [Concomitant]
     Active Substance: RIBOFLAVIN
     Route: 048
  15. CLONAZEPAM. [Concomitant]
     Active Substance: CLONAZEPAM
     Indication: ANXIETY
  16. DOMPERIDONE [Concomitant]
     Active Substance: DOMPERIDONE
     Indication: GASTROINTESTINAL HYPOMOTILITY
     Dosage: ONCE TO TWICE A DAY
     Route: 048
  17. VITAMIN E [Concomitant]
     Active Substance: .ALPHA.-TOCOPHEROL
     Route: 048
  18. FLUOXETINE [Concomitant]
     Active Substance: FLUOXETINE HYDROCHLORIDE
     Indication: DEPRESSION
     Dosage: 10?20 MG ONCE A DAY (SOMETIMES HE TAKES 10 MG AND OTHERS 20 MG)
     Route: 048
  19. FLONASE [Concomitant]
     Active Substance: FLUTICASONE PROPIONATE
     Dosage: 1 SPRAY IN EACH NOSTRIL TWICE A DAY
  20. DOCUSATE [Concomitant]
     Active Substance: DOCUSATE
     Indication: FAECES HARD
     Dosage: TAKEN AT NIGHT
     Route: 048
  21. SIMVASTATIN. [Concomitant]
     Active Substance: SIMVASTATIN
     Indication: BLOOD CHOLESTEROL ABNORMAL
     Route: 048
  22. FLOMAX [Concomitant]
     Active Substance: TAMSULOSIN HYDROCHLORIDE
     Indication: URINARY TRACT DISORDER
     Route: 048
  23. VITAMIN D3 [Concomitant]
     Active Substance: CHOLECALCIFEROL
     Route: 048

REACTIONS (2)
  - Somnolence [Not Recovered/Not Resolved]
  - Restlessness [Not Recovered/Not Resolved]

NARRATIVE: CASE EVENT DATE: 2018
